FAERS Safety Report 22694050 (Version 4)
Quarter: 2025Q1

REPORT INFORMATION
  Report Type: Spontaneous
  Country: US (occurrence: US)
  Receive Date: 20230711
  Receipt Date: 20250115
  Transmission Date: 20250408
  Serious: Yes (Hospitalization, Other)
  Sender: PFIZER
  Company Number: US-PFIZER INC-202101097511

PATIENT
  Age: 68 Year
  Sex: Female
  Weight: 108.86 kg

DRUGS (12)
  1. XELJANZ XR [Suspect]
     Active Substance: TOFACITINIB CITRATE
     Indication: Rheumatoid arthritis
     Dosage: 11 MG, 1X/DAY
  2. XELJANZ XR [Suspect]
     Active Substance: TOFACITINIB CITRATE
     Dosage: 11 MG, 1X/DAY
     Dates: start: 202012, end: 202109
  3. OMEPRAZOLE [Concomitant]
     Active Substance: OMEPRAZOLE
     Indication: Dyspepsia
     Dosage: 40 MG, DAILY
  4. ATORVASTATIN [Concomitant]
     Active Substance: ATORVASTATIN
     Indication: Blood cholesterol abnormal
     Dosage: 20 MG, DAILY
  5. LEVOTHYROXINE [Concomitant]
     Active Substance: LEVOTHYROXINE
     Indication: Thyroid neoplasm removal
     Dosage: 112 UG, 1X/DAY (ONCE EVERY MORNING, FIRST THING WHEN GETTING UP)
  6. VIT D [VITAMIN D NOS] [Concomitant]
     Indication: Vitamin D abnormal
     Dosage: 50000 IU, WEEKLY
  7. ASPIRIN [Concomitant]
     Active Substance: ASPIRIN
  8. CYCLOBENZAPRINE [Concomitant]
     Active Substance: CYCLOBENZAPRINE
  9. ERGOCALCIFEROL [Concomitant]
     Active Substance: ERGOCALCIFEROL
  10. LACTOBACILLUS [LACTOBACILLUS ACIDOPHILUS] [Concomitant]
  11. MACROBID [Concomitant]
     Active Substance: NITROFURANTOIN\NITROFURANTOIN MONOHYDRATE
  12. ZALEPLON [Concomitant]
     Active Substance: ZALEPLON

REACTIONS (11)
  - Pneumonia [Unknown]
  - COVID-19 [Unknown]
  - Impaired healing [Not Recovered/Not Resolved]
  - Corneal transplant [Unknown]
  - Hepatotoxicity [Unknown]
  - Condition aggravated [Unknown]
  - Urinary tract infection [Unknown]
  - Hepatic enzyme increased [Unknown]
  - Bursitis [Unknown]
  - Infection [Unknown]
  - Arthralgia [Unknown]

NARRATIVE: CASE EVENT DATE: 20201201
